FAERS Safety Report 7651448-3 (Version None)
Quarter: 2011Q3

REPORT INFORMATION
  Report Type: 
  Country: None (occurrence: None)
  Receive Date: 20110802
  Receipt Date: 20110725
  Transmission Date: 20111222
  Serious: Yes (Hospitalization)
  Sender: FDA-Public Use
  Company Number: PHHY2011FR67549

PATIENT
  Sex: Female

DRUGS (1)
  1. TRILEPTAL [Suspect]
     Indication: ABDOMINAL PAIN
     Dosage: 150 MG, TID
     Route: 048
     Dates: start: 20110513

REACTIONS (7)
  - LUNG DISORDER [None]
  - PYREXIA [None]
  - C-REACTIVE PROTEIN INCREASED [None]
  - DYSPHONIA [None]
  - PHOTOPHOBIA [None]
  - CLONUS [None]
  - HEADACHE [None]
